FAERS Safety Report 6072032-1 (Version None)
Quarter: 2009Q1

REPORT INFORMATION
  Report Type: 
  Country: None (occurrence: None)
  Receive Date: 20090205
  Receipt Date: 20090205
  Transmission Date: 20090719
  Serious: Yes (Death, Hospitalization)
  Sender: FDA-Public Use
  Company Number: None

PATIENT
  Sex: Male
  Weight: 70 kg

DRUGS (6)
  1. MERCAPTOPURINE [Suspect]
     Dosage: 1675 MG
  2. METHOTREXATE [Suspect]
     Dosage: 70 MG
  3. VINCRISTINE SULFATE [Suspect]
     Dosage: 2 MG
  4. DEXAMETHASONE [Suspect]
     Dosage: 90 MG
  5. BACTRIM [Concomitant]
  6. ZANTAC [Concomitant]

REACTIONS (5)
  - DIARRHOEA [None]
  - NEUTROPENIA [None]
  - PYREXIA [None]
  - RESPIRATORY DISTRESS [None]
  - VIRAL DNA TEST POSITIVE [None]
